FAERS Safety Report 6092833-3 (Version None)
Quarter: 2009Q1

REPORT INFORMATION
  Report Type: 
  Country: None (occurrence: None)
  Receive Date: 20090225
  Receipt Date: 20090218
  Transmission Date: 20090719
  Serious: Yes (Other)
  Sender: FDA-Public Use
  Company Number: IT-ROXANE LABORATORIES, INC.-2009-RO-00164RO

PATIENT
  Age: 34 Year
  Sex: Male

DRUGS (6)
  1. CITALOPRAM HYDROBROMIDE [Suspect]
     Indication: DEPRESSION
     Dosage: 20MG
  2. TOPIRAMATE [Suspect]
     Indication: MIGRAINE PROPHYLAXIS
     Dosage: 25MG
  3. ACETAZOLAMIDE [Concomitant]
     Indication: GLAUCOMA
  4. LATANOPROST [Concomitant]
     Indication: GLAUCOMA
  5. TIMOLOL [Concomitant]
     Indication: GLAUCOMA
  6. PILOCARPINE [Concomitant]
     Indication: GLAUCOMA

REACTIONS (3)
  - ANGLE CLOSURE GLAUCOMA [None]
  - DRUG LEVEL BELOW THERAPEUTIC [None]
  - MYOPIA [None]
